FAERS Safety Report 18696763 (Version 1)
Quarter: 2021Q1

REPORT INFORMATION
  Report Type: Spontaneous
  Country: US (occurrence: US)
  Receive Date: 20210104
  Receipt Date: 20210104
  Transmission Date: 20210419
  Serious: Yes (Other)
  Sender: FDA-Public Use
  Company Number: US-ROCHE-2616117

PATIENT

DRUGS (1)
  1. ALTEPLASE. [Suspect]
     Active Substance: ALTEPLASE
     Indication: ISCHAEMIC STROKE
     Dosage: THE MOST RECENT DOSE WAS GIVEN ON 30/MAY/2020
     Route: 065
     Dates: start: 202003

REACTIONS (1)
  - Haemorrhagic transformation stroke [Unknown]
